FAERS Safety Report 8809377 (Version 2)
Quarter: 2012Q4

REPORT INFORMATION
  Report Type: Report from Study
  Country: US (occurrence: US)
  Receive Date: 20120926
  Receipt Date: 20121016
  Transmission Date: 20130627
  Serious: Yes (Hospitalization)
  Sender: FDA-Public Use
  Company Number: US-JNJFOC-20120907366

PATIENT
  Age: 61 Year
  Sex: Male

DRUGS (11)
  1. ACETAMINOPHEN [Suspect]
     Indication: PAIN
     Route: 065
  2. ACETAMINOPHEN [Suspect]
     Indication: PAIN
     Dosage: at 9:22
     Route: 065
     Dates: start: 20120912
  3. ALBUTEROL [Concomitant]
  4. BABY ASA [Concomitant]
  5. FERROUS SULFATE [Concomitant]
  6. LASIX [Concomitant]
  7. IMDUR [Concomitant]
  8. LISINOPRIL [Concomitant]
  9. TOPROL [Concomitant]
  10. CARVEDILOL [Concomitant]
  11. SIMVASTATIN [Concomitant]

REACTIONS (7)
  - Atrial tachycardia [Recovered/Resolved]
  - Electrocardiogram abnormal [Recovered/Resolved]
  - Syncope [Recovered/Resolved]
  - Hypotension [Recovered/Resolved]
  - Vomiting [Recovered/Resolved]
  - Dizziness [Recovered/Resolved]
  - Nausea [Recovered/Resolved]
